FAERS Safety Report 4565530-0 (Version None)
Quarter: 2005Q1

REPORT INFORMATION
  Report Type: 
  Country: None (occurrence: None)
  Receive Date: 20050131
  Receipt Date: 20050124
  Transmission Date: 20050727
  Serious: Yes (Hospitalization)
  Sender: FDA-Public Use
  Company Number: NL-GLAXOSMITHKLINE-B0369021A

PATIENT
  Age: 25 Year
  Sex: Male

DRUGS (2)
  1. LAMIVUDINE [Suspect]
     Dosage: 100MG PER DAY
     Route: 065
     Dates: start: 20031202
  2. PEG-INTRON [Concomitant]
     Route: 065

REACTIONS (1)
  - CROHN'S DISEASE [None]
